FAERS Safety Report 7258971-4 (Version None)
Quarter: 2011Q1

REPORT INFORMATION
  Report Type: 
  Country: None (occurrence: None)
  Receive Date: 20110129
  Receipt Date: 20100617
  Transmission Date: 20110831
  Serious: No
  Sender: FDA-Public Use
  Company Number: US-ABBOTT-10P-163-0653036-00

PATIENT
  Age: 18 Year
  Sex: Male
  Weight: 52.21 kg

DRUGS (4)
  1. METHOTREXATE [Concomitant]
     Indication: PRODUCT USED FOR UNKNOWN INDICATION
  2. ACCUTAINE [Concomitant]
     Indication: PRODUCT USED FOR UNKNOWN INDICATION
  3. HUMIRA [Suspect]
     Indication: SAPHO SYNDROME
     Dates: start: 20091201
  4. HUMIRA [Suspect]
     Indication: OSTEOMYELITIS CHRONIC

REACTIONS (1)
  - INJECTION SITE PAIN [None]
